FAERS Safety Report 6981389-6 (Version None)
Quarter: 2010Q3

REPORT INFORMATION
  Report Type: 
  Country: None (occurrence: None)
  Receive Date: 20100914
  Receipt Date: 20100831
  Transmission Date: 20110219
  Serious: Yes (Death, Other)
  Sender: FDA-Public Use
  Company Number: GB-MYLANLABS-2010S1016129

PATIENT
  Age: 10 Year
  Sex: Male

DRUGS (7)
  1. AZATHIOPRINE [Suspect]
     Indication: CROHN'S DISEASE
  2. CYCLOPHOSPHAMIDE [Suspect]
     Indication: LYMPHOPROLIFERATIVE DISORDER
  3. GANCICLOVIR SODIUM [Suspect]
     Indication: EPSTEIN-BARR VIRUS INFECTION
  4. MESALAZINE [Suspect]
     Indication: CROHN'S DISEASE
  5. PREDNISOLONE [Suspect]
     Indication: CROHN'S DISEASE
  6. RITUXIMAB [Suspect]
     Indication: LYMPHOPROLIFERATIVE DISORDER
  7. VINCRISTINE [Suspect]
     Indication: LYMPHOPROLIFERATIVE DISORDER

REACTIONS (5)
  - EPSTEIN-BARR VIRUS ASSOCIATED LYMPHOPROLIFERATIVE DISORDER [None]
  - INTESTINAL PERFORATION [None]
  - INTESTINAL ULCER [None]
  - RECTAL HAEMORRHAGE [None]
  - RENAL IMPAIRMENT [None]
